FAERS Safety Report 15702553 (Version 2)
Quarter: 2018Q4

REPORT INFORMATION
  Report Type: Report from Study
  Country: CA (occurrence: US)
  Receive Date: 20181210
  Receipt Date: 20181219
  Transmission Date: 20190205
  Serious: Yes (Other)
  Sender: FDA-Public Use
  Company Number: CA-ROCHE-2225256

PATIENT
  Age: 86 Year
  Sex: Female

DRUGS (1)
  1. ATEZOLIZUMAB. [Suspect]
     Active Substance: ATEZOLIZUMAB
     Indication: GENITOURINARY TRACT NEOPLASM
     Route: 065
     Dates: start: 20180705

REACTIONS (2)
  - Chronic kidney disease [Unknown]
  - Nephritis [Unknown]
